FAERS Safety Report 23577824 (Version 2)
Quarter: 2024Q1

REPORT INFORMATION
  Report Type: Report from Study
  Country: CL (occurrence: CL)
  Receive Date: 20240228
  Receipt Date: 20240312
  Transmission Date: 20240409
  Serious: Yes (Hospitalization, Other)
  Sender: FDA-Public Use
  Company Number: CL-BAYER-2024A021182

PATIENT
  Age: 63 Year
  Sex: Male

DRUGS (4)
  1. VENTAVIS [Suspect]
     Active Substance: ILOPROST
     Indication: Pulmonary hypertension
     Dosage: 1 ML, Q4HR
     Route: 055
     Dates: start: 20170228, end: 202308
  2. SILDENAFIL [Concomitant]
     Active Substance: SILDENAFIL
     Dosage: 25 MG, BID
  3. AMBRISENTAN [Concomitant]
     Active Substance: AMBRISENTAN
     Dosage: 10 MG, QD
  4. SPIRONOLACTONE [Concomitant]
     Active Substance: SPIRONOLACTONE

REACTIONS (8)
  - Dyspnoea [Not Recovered/Not Resolved]
  - Cardiac failure [Not Recovered/Not Resolved]
  - Erythema [Recovered/Resolved]
  - Oropharyngeal pain [Recovered/Resolved]
  - Colitis [Recovered/Resolved]
  - Headache [Recovered/Resolved]
  - Swelling [Recovered/Resolved]
  - Fluid retention [Recovered/Resolved]

NARRATIVE: CASE EVENT DATE: 20240205
